FAERS Safety Report 6673426-3 (Version None)
Quarter: 2010Q2

REPORT INFORMATION
  Report Type: 
  Country: None (occurrence: None)
  Receive Date: 20100408
  Receipt Date: 20100329
  Transmission Date: 20101027
  Serious: Yes (Death, Other)
  Sender: FDA-Public Use
  Company Number: US-PFIZER INC-2010040684

PATIENT
  Sex: Male

DRUGS (18)
  1. LIPITOR [Suspect]
     Indication: BLOOD CHOLESTEROL INCREASED
     Dosage: 20 MG, DAILY
     Route: 048
  2. TYLENOL-500 [Concomitant]
     Indication: ARTHRITIS
     Dosage: UNK, 8X/DAY
  3. PACERONE [Concomitant]
     Dosage: 200 MG, DAILY
  4. ZANTAC [Concomitant]
     Dosage: 150 MG, 2X/DAY
  5. PLAVIX [Concomitant]
     Dosage: 75 MG, DAILY
  6. PROSCAR [Concomitant]
     Dosage: 5 MG, DAILY
  7. LASIX [Concomitant]
     Dosage: 40 MG, AS NEEDED
  8. ALLEGRA [Concomitant]
     Dosage: 180 MG, DAILY
  9. BETAGAN [Concomitant]
     Dosage: 1 GTT, IN EACH EYE
  10. DARIFENACIN [Concomitant]
     Dosage: 15 MG, DAILY
  11. AMITIZA [Concomitant]
     Dosage: 24 MG, 2X/DAY
  12. ZONEGRAN [Concomitant]
     Dosage: 400 MG, AT BEDTIME
  13. KLOR-CON [Concomitant]
     Dosage: 20 MG, 3X/DAY
  14. CENTRUM SILVER [Concomitant]
     Dosage: UNK, DAILY
  15. DULCOLAX [Concomitant]
     Dosage: UNK, 5X/DAY
  16. ULTRAM [Concomitant]
     Dosage: UNK
  17. CALCIUM [Concomitant]
     Dosage: UNK
  18. LOVAZA [Concomitant]
     Dosage: 1200 MG, DAILY

REACTIONS (5)
  - ABDOMINAL DISCOMFORT [None]
  - DEMENTIA [None]
  - DRY EYE [None]
  - OSTEOPOROSIS [None]
  - PARKINSON'S DISEASE [None]
